FAERS Safety Report 21575459 (Version 5)
Quarter: 2023Q4

REPORT INFORMATION
  Report Type: Other
  Country: US (occurrence: None)
  Receive Date: 20221110
  Receipt Date: 20231211
  Transmission Date: 20240110
  Serious: No
  Sender: FDA-Public Use
  Company Number: US-ROCHE-3212789

PATIENT
  Age: 52 Year
  Sex: Female

DRUGS (12)
  1. OCREVUS [Suspect]
     Active Substance: OCRELIZUMAB
     Indication: Relapsing-remitting multiple sclerosis
     Dosage: MAINTENANCE DOSE: INFUSE 600MG IV EVERY 6 MONTHS?DATE OF MOST RECENT INFUSION : 2023-08-24
     Route: 042
  2. VALIUM [Suspect]
     Active Substance: DIAZEPAM
     Indication: Product used for unknown indication
     Dosage: 1 TABLET 45-60MINUTES PRIOR TO MRI. MAY REPEAT X 1 DOSE
     Route: 048
  3. BACLOFEN [Concomitant]
     Active Substance: BACLOFEN
  4. FLUOXETINE HYDROCHLORIDE [Concomitant]
     Active Substance: FLUOXETINE HYDROCHLORIDE
  5. LEVOTHYROXINE SODIUM [Concomitant]
     Active Substance: LEVOTHYROXINE SODIUM
  6. METHYLPREDNISOLONE SODIUM SUCCINATE [Concomitant]
     Active Substance: METHYLPREDNISOLONE SODIUM SUCCINATE
  7. CARBAMAZEPINE [Concomitant]
     Active Substance: CARBAMAZEPINE
  8. DOCUSATE SODIUM [Concomitant]
     Active Substance: DOCUSATE SODIUM
     Route: 065
  9. NORTRIPTYLINE HYDROCHLORIDE [Concomitant]
     Active Substance: NORTRIPTYLINE HYDROCHLORIDE
  10. SENNA LAXATIVE [Concomitant]
     Active Substance: SENNOSIDES
  11. TOPAMAX [Concomitant]
     Active Substance: TOPIRAMATE
  12. TRAZODONE HCL [Concomitant]
     Active Substance: TRAZODONE HYDROCHLORIDE

REACTIONS (10)
  - Malaise [Unknown]
  - Fatigue [Unknown]
  - Memory impairment [Unknown]
  - Disturbance in attention [Unknown]
  - Pain [Unknown]
  - Hypoaesthesia [Unknown]
  - Fall [Unknown]
  - Constipation [Unknown]
  - Vertigo [Unknown]
  - JC polyomavirus test positive [Unknown]
